FAERS Safety Report 7001464-X (Version None)
Quarter: 2010Q3

REPORT INFORMATION
  Report Type: 
  Country: None (occurrence: None)
  Receive Date: 20100920
  Receipt Date: 20091207
  Transmission Date: 20110219
  Serious: No
  Sender: FDA-Public Use
  Company Number: US-ASTRAZENECA-2009SE30617

PATIENT
  Sex: Male

DRUGS (6)
  1. SEROQUEL [Suspect]
     Indication: ANXIETY
     Route: 048
     Dates: start: 20081201, end: 20091101
  2. SEROQUEL [Suspect]
     Indication: DEPRESSION
     Route: 048
     Dates: start: 20081201, end: 20091101
  3. SEROQUEL [Suspect]
     Route: 048
     Dates: start: 20081201, end: 20091101
  4. SEROQUEL [Suspect]
     Route: 048
     Dates: start: 20081201, end: 20091101
  5. RISPERIDONE [Concomitant]
  6. LEXAPRO [Concomitant]

REACTIONS (3)
  - DRUG DOSE OMISSION [None]
  - ILL-DEFINED DISORDER [None]
  - INDIFFERENCE [None]
